FAERS Safety Report 8101373-9 (Version None)
Quarter: 2012Q1

REPORT INFORMATION
  Report Type: 
  Country: None (occurrence: None)
  Receive Date: 20120129
  Receipt Date: 20110927
  Transmission Date: 20120608
  Serious: No
  Sender: FDA-Public Use
  Company Number: US-ABBOTT-11P-163-0858379-00

PATIENT
  Age: 54 Year
  Sex: Female

DRUGS (3)
  1. IMURAN [Concomitant]
     Indication: PRODUCT USED FOR UNKNOWN INDICATION
     Dosage: EVERY MORNING
  2. HUMIRA [Suspect]
     Indication: CROHN'S DISEASE
     Dates: start: 20110723
  3. LOMOTIL [Concomitant]
     Indication: DIARRHOEA

REACTIONS (3)
  - DIARRHOEA [None]
  - INJECTION SITE MACULE [None]
  - PRURITUS GENERALISED [None]
